FAERS Safety Report 5135673-1 (Version None)
Quarter: 2006Q4

REPORT INFORMATION
  Report Type: 
  Country: None (occurrence: None)
  Receive Date: 20061026
  Receipt Date: 20061020
  Transmission Date: 20070319
  Serious: Yes (Other)
  Sender: FDA-Public Use
  Company Number: 2006UW20367

PATIENT
  Age: 38 Year
  Sex: Female
  Weight: 81.8 kg

DRUGS (1)
  1. PRILOSEC OTC [Suspect]
     Indication: DYSPEPSIA
     Route: 048
     Dates: start: 20041020, end: 20061020

REACTIONS (1)
  - MUSCLE ENZYME INCREASED [None]
